FAERS Safety Report 6602067-9 (Version None)
Quarter: 2010Q1

REPORT INFORMATION
  Report Type: 
  Country: None (occurrence: None)
  Receive Date: 20100225
  Receipt Date: 20100215
  Transmission Date: 20100710
  Serious: Yes (Other)
  Sender: FDA-Public Use
  Company Number: PHEH2010US00667

PATIENT
  Sex: Male

DRUGS (1)
  1. GLEEVEC [Suspect]
     Indication: ABDOMINAL NEOPLASM
     Dosage: 400 MG, QD
     Route: 048
     Dates: start: 20091218, end: 20100102

REACTIONS (6)
  - ARTHRALGIA [None]
  - BONE PAIN [None]
  - EYE SWELLING [None]
  - OEDEMA PERIPHERAL [None]
  - SWELLING FACE [None]
  - WEIGHT INCREASED [None]
